FAERS Safety Report 12497870 (Version 4)
Quarter: 2016Q3

REPORT INFORMATION
  Report Type: Spontaneous
  Country: GB (occurrence: GB)
  Receive Date: 20160625
  Receipt Date: 20160819
  Transmission Date: 20161109
  Serious: Yes (Hospitalization, Other)
  Sender: FDA-Public Use
  Company Number: GB-APOTEX-2016AP009315

PATIENT
  Age: 54 Year
  Sex: Male

DRUGS (16)
  1. PAXIL [Suspect]
     Active Substance: PAROXETINE HYDROCHLORIDE
     Dosage: UNK
     Route: 065
     Dates: start: 20011211, end: 20011217
  2. PAXIL [Suspect]
     Active Substance: PAROXETINE HYDROCHLORIDE
     Indication: DEPRESSION
     Dosage: UNK
     Route: 048
     Dates: start: 200007, end: 20011217
  3. MIRTAZAPINE. [Suspect]
     Active Substance: MIRTAZAPINE
     Indication: PRODUCT USED FOR UNKNOWN INDICATION
     Dosage: UNK
     Route: 065
     Dates: start: 200202
  4. DIAZEPAM. [Concomitant]
     Active Substance: DIAZEPAM
     Dosage: UNK
     Route: 065
     Dates: start: 20011129
  5. PAXIL [Suspect]
     Active Substance: PAROXETINE HYDROCHLORIDE
     Dosage: UNK
     Route: 065
     Dates: start: 200007
  6. PAXIL [Suspect]
     Active Substance: PAROXETINE HYDROCHLORIDE
     Dosage: UNK
     Route: 065
     Dates: start: 2001
  7. PAXIL [Suspect]
     Active Substance: PAROXETINE HYDROCHLORIDE
     Dosage: UNK
     Route: 065
     Dates: start: 20011129
  8. FLUOXETINE [Concomitant]
     Active Substance: FLUOXETINE HYDROCHLORIDE
     Indication: PRODUCT USED FOR UNKNOWN INDICATION
     Dosage: 20 MG, UNK
     Route: 065
  9. GAMANIL [Concomitant]
     Indication: PRODUCT USED FOR UNKNOWN INDICATION
     Dosage: 70 MG, BID
     Route: 065
     Dates: start: 20011201, end: 200201
  10. SINEMET [Concomitant]
     Active Substance: CARBIDOPA\LEVODOPA
     Indication: PRODUCT USED FOR UNKNOWN INDICATION
     Dosage: UNK
     Route: 065
  11. PAROXETINE. [Suspect]
     Active Substance: PAROXETINE
     Indication: DEPRESSION
     Dosage: 40 MG, QD
     Route: 048
     Dates: start: 20011017, end: 20011211
  12. DIAZEPAM. [Concomitant]
     Active Substance: DIAZEPAM
     Indication: PRODUCT USED FOR UNKNOWN INDICATION
     Dosage: UNK
     Route: 065
     Dates: start: 20011101
  13. AMITRIPTYLINE [Concomitant]
     Active Substance: AMITRIPTYLINE
     Indication: PRODUCT USED FOR UNKNOWN INDICATION
     Dosage: 10 MG, UNK
     Route: 065
     Dates: start: 200805
  14. PAXIL [Suspect]
     Active Substance: PAROXETINE HYDROCHLORIDE
     Dosage: 30MG
     Route: 065
     Dates: start: 20011106
  15. STALEVO [Suspect]
     Active Substance: CARBIDOPA\ENTACAPONE\LEVODOPA
     Indication: PARKINSON^S DISEASE
     Dosage: UNK
     Route: 065
  16. PROPRANOLOL [Concomitant]
     Active Substance: PROPRANOLOL\PROPRANOLOL HYDROCHLORIDE
     Indication: PRODUCT USED FOR UNKNOWN INDICATION
     Dosage: 40 MG, TID
     Route: 065
     Dates: start: 200007

REACTIONS (29)
  - Panic attack [Unknown]
  - Muscle spasms [Unknown]
  - Decreased interest [Unknown]
  - Terminal insomnia [Unknown]
  - Tearfulness [Unknown]
  - Weight decreased [Unknown]
  - Intrusive thoughts [Unknown]
  - Apathy [Unknown]
  - Abnormal dreams [Unknown]
  - Restlessness [Unknown]
  - Hallucination [Unknown]
  - Trismus [Unknown]
  - Psychomotor hyperactivity [Unknown]
  - Negative thoughts [Unknown]
  - Decreased appetite [Unknown]
  - Tremor [Unknown]
  - Paraesthesia [Unknown]
  - Suicidal ideation [Unknown]
  - Aggression [Unknown]
  - Nightmare [Unknown]
  - Withdrawal syndrome [Unknown]
  - Depression [Unknown]
  - Feeling guilty [Unknown]
  - Anxiety disorder [Unknown]
  - Agitation [Unknown]
  - Palpitations [Unknown]
  - Parkinson^s disease [Not Recovered/Not Resolved]
  - Hyperhidrosis [Unknown]
  - Sleep disorder [Unknown]

NARRATIVE: CASE EVENT DATE: 200111
